FAERS Safety Report 20416743 (Version 1)
Quarter: 2022Q1

REPORT INFORMATION
  Report Type: Spontaneous
  Country: CN (occurrence: CN)
  Receive Date: 20220202
  Receipt Date: 20220202
  Transmission Date: 20220423
  Serious: Yes (Other)
  Sender: FDA-Public Use
  Company Number: CN-ABBVIE-22K-035-4254137-00

PATIENT
  Age: 70 Year
  Sex: Female
  Weight: 44 kg

DRUGS (2)
  1. VALPROATE SODIUM [Suspect]
     Active Substance: VALPROATE SODIUM
     Indication: Symptomatic treatment
     Route: 048
     Dates: start: 20180521, end: 20181228
  2. SERTRALINE HYDROCHLORIDE [Suspect]
     Active Substance: SERTRALINE HYDROCHLORIDE
     Indication: Symptomatic treatment
     Route: 048
     Dates: start: 20180524, end: 20181228

REACTIONS (2)
  - White blood cell count decreased [Unknown]
  - Abdominal discomfort [Unknown]
